FAERS Safety Report 24410814 (Version 2)
Quarter: 2024Q4

REPORT INFORMATION
  Report Type: Spontaneous
  Country: ZA (occurrence: ZA)
  Receive Date: 20241008
  Receipt Date: 20241015
  Transmission Date: 20250114
  Serious: Yes (Life-Threatening)
  Sender: MACLEODS
  Company Number: ZA-MACLEODS PHARMA-MAC2024049650

PATIENT

DRUGS (2)
  1. HYDROCHLOROTHIAZIDE\LOSARTAN [Suspect]
     Active Substance: HYDROCHLOROTHIAZIDE\LOSARTAN
     Indication: Malaise
     Dosage: GTIN: 18901463174323, SR. NO.: 6MYIZG6FA502
     Route: 048
     Dates: start: 20240919, end: 20240925
  2. HYDROCHLOROTHIAZIDE\LOSARTAN [Suspect]
     Active Substance: HYDROCHLOROTHIAZIDE\LOSARTAN
     Indication: Blood pressure increased

REACTIONS (2)
  - Feeling abnormal [Recovered/Resolved]
  - Drug ineffective [Recovered/Resolved]

NARRATIVE: CASE EVENT DATE: 20240920
